FAERS Safety Report 15301398 (Version 2)
Quarter: 2018Q4

REPORT INFORMATION
  Report Type: Spontaneous
  Country: US (occurrence: US)
  Receive Date: 20180821
  Receipt Date: 20181014
  Transmission Date: 20190204
  Serious: No
  Sender: FDA-Public Use
  Company Number: US-BAUSCH-BL-2018-021166

PATIENT
  Sex: Female

DRUGS (1)
  1. VYZULTA [Suspect]
     Active Substance: LATANOPROSTENE BUNOD
     Indication: PRODUCT USED FOR UNKNOWN INDICATION
     Route: 065

REACTIONS (2)
  - Nausea [Unknown]
  - Vomiting [Unknown]
